FAERS Safety Report 8267826-8 (Version None)
Quarter: 2012Q2

REPORT INFORMATION
  Report Type: 
  Country: None (occurrence: None)
  Receive Date: 20120404
  Receipt Date: 20120322
  Transmission Date: 20120825
  Serious: Yes (Other)
  Sender: FDA-Public Use
  Company Number: DSJ-2012-05653

PATIENT
  Sex: Female

DRUGS (2)
  1. BENICDAR (OLMESARTAN MEDOXOMIL) (TABLET) [Suspect]
     Indication: HYPERTENSION
     Dosage: 40;20 MG (40 MG, 1 IN 1 D), ORAL
     Route: 048
     Dates: end: 20110901
  2. BENICDAR (OLMESARTAN MEDOXOMIL) (TABLET) [Suspect]
     Indication: HYPERTENSION
     Dosage: 40;20 MG (40 MG, 1 IN 1 D), ORAL
     Route: 048
     Dates: start: 20110901

REACTIONS (4)
  - HAEMORRHAGE [None]
  - HYPOTENSION [None]
  - ULCER [None]
  - ANAEMIA [None]
